FAERS Safety Report 24702164 (Version 1)
Quarter: 2024Q4

REPORT INFORMATION
  Report Type: Spontaneous
  Country: US (occurrence: None)
  Receive Date: 20241204
  Receipt Date: 20241204
  Transmission Date: 20250115
  Serious: Yes (Other)
  Sender: Public
  Company Number: None

PATIENT
  Age: 6 Year
  Sex: Female

DRUGS (1)
  1. DG HEALTH CHILDRENS PAIN AND FEVER [Suspect]
     Active Substance: ACETAMINOPHEN
     Indication: Nasopharyngitis
     Dosage: FREQUENCY : EVERY 4 HOURS;?
     Route: 048
     Dates: start: 20241204, end: 20241204

REACTIONS (5)
  - Rash pruritic [None]
  - Rash erythematous [None]
  - Urticaria [None]
  - Rash [None]
  - Rash [None]

NARRATIVE: CASE EVENT DATE: 20241204
